FAERS Safety Report 10379593 (Version 2)
Quarter: 2014Q3

REPORT INFORMATION
  Report Type: Spontaneous
  Country: VE (occurrence: VE)
  Receive Date: 20140812
  Receipt Date: 20140827
  Transmission Date: 20150326
  Serious: Yes (Hospitalization)
  Sender: FDA-Public Use
  Company Number: PHHY2014VE099153

PATIENT
  Sex: Female

DRUGS (8)
  1. FORADIL [Suspect]
     Active Substance: FORMOTEROL FUMARATE
     Indication: CHRONIC OBSTRUCTIVE PULMONARY DISEASE
  2. FORADIL [Suspect]
     Active Substance: FORMOTEROL FUMARATE
     Indication: COUGH
     Dosage: UNK UKN, QHS (NIGHT TIME ADMINISTRATION)
     Dates: start: 2012, end: 20140812
  3. AMLODIPINE [Concomitant]
     Active Substance: AMLODIPINE BESYLATE
     Indication: HYPERTENSION
     Dosage: 5 MG, UNK
     Route: 048
  4. FORADIL [Suspect]
     Active Substance: FORMOTEROL FUMARATE
     Indication: RESPIRATORY DISORDER
     Dosage: UNK UKN, DAILY
     Route: 055
     Dates: start: 2009
  5. MIFLONIDE [Suspect]
     Active Substance: BUDESONIDE
     Indication: CHRONIC OBSTRUCTIVE PULMONARY DISEASE
  6. MIFLONIDE [Suspect]
     Active Substance: BUDESONIDE
     Indication: COUGH
     Dosage: UNK UKN, QHS (NIGHT TIME ADMINISTRATION)
     Dates: start: 2012, end: 20140812
  7. OMEPRAZOLE. [Concomitant]
     Active Substance: OMEPRAZOLE
     Indication: GASTRITIS PROPHYLAXIS
     Dosage: 1 DF, DAILY
     Route: 048
  8. MIFLONIDE [Suspect]
     Active Substance: BUDESONIDE
     Indication: RESPIRATORY DISORDER
     Dosage: UNK UKN, DAILY
     Route: 055
     Dates: start: 2009

REACTIONS (3)
  - Allergic cough [Not Recovered/Not Resolved]
  - Fall [Recovered/Resolved]
  - Device dislocation [Recovering/Resolving]

NARRATIVE: CASE EVENT DATE: 201405
